FAERS Safety Report 4722076-4 (Version None)
Quarter: 2005Q3

REPORT INFORMATION
  Report Type: 
  Country: None (occurrence: None)
  Receive Date: 20050722
  Receipt Date: 20050317
  Transmission Date: 20060218
  Serious: Yes (Other)
  Sender: FDA-Public Use
  Company Number: JP-SOLVAY-00305000868

PATIENT
  Age: 45 Year
  Sex: Female

DRUGS (5)
  1. METHIMAZOLE [Concomitant]
     Indication: ILL-DEFINED DISORDER
     Dosage: DAILY DOSE: 20 MILLIGRAM(S)
     Route: 048
     Dates: start: 20050202, end: 20050216
  2. DEPROMEL 25 [Suspect]
     Indication: DEPRESSION
     Dosage: DAILY DOSE: 25 MILLIGRAM(S)
     Route: 048
     Dates: start: 20050202, end: 20050216
  3. TRANDATE [Concomitant]
     Indication: ILL-DEFINED DISORDER
     Dosage: DAILY DOSE: 100 MILLIGRAM(S)
     Route: 048
     Dates: start: 20050202, end: 20050216
  4. MEILAX [Concomitant]
     Indication: ILL-DEFINED DISORDER
     Dosage: DAILY DOSE: 1 MILLIGRAM(S)
     Route: 048
     Dates: start: 20050202, end: 20050216
  5. SHAKUYAKU-KANZO-TO [Concomitant]
     Indication: ILL-DEFINED DISORDER
     Dosage: DAILY DOSE: 6 GRAM(S)
     Route: 048
     Dates: start: 20050204, end: 20050205

REACTIONS (1)
  - BLOOD CREATINE PHOSPHOKINASE INCREASED [None]
